FAERS Safety Report 18353789 (Version 1)
Quarter: 2020Q4

REPORT INFORMATION
  Report Type: Other
  Country: FR (occurrence: FR)
  Receive Date: 20201007
  Receipt Date: 20201007
  Transmission Date: 20210114
  Serious: Yes (Life-Threatening)
  Sender: FDA-Public Use
  Company Number: FR-CADILA HEALTHCARE LIMITED-FR-ZYDUS-056691

PATIENT

DRUGS (4)
  1. TRANXENE [Suspect]
     Active Substance: CLORAZEPATE DIPOTASSIUM
     Indication: SUICIDE ATTEMPT
     Dosage: 30 DOSAGE FORM ONCE TOTAL
     Route: 048
     Dates: start: 20130820, end: 20130820
  2. RISPERIDONE. [Suspect]
     Active Substance: RISPERIDONE
     Indication: SUICIDE ATTEMPT
     Dosage: 6 DOSAGE FORM ONCE TOTAL
     Route: 048
     Dates: start: 20130820, end: 20130820
  3. DEPAKOTE [Suspect]
     Active Substance: DIVALPROEX SODIUM
     Indication: SUICIDE ATTEMPT
     Dosage: 90 DOSAGE FORM ONCE TOTAL
     Route: 048
     Dates: start: 20130820, end: 20130820
  4. ZOLPIDEM [Suspect]
     Active Substance: ZOLPIDEM TARTRATE
     Indication: SUICIDE ATTEMPT
     Dosage: 16 DOSAGE FORM ONCE TOTAL
     Route: 048
     Dates: start: 20130820, end: 20130820

REACTIONS (3)
  - Hyperlactacidaemia [Recovered/Resolved]
  - Hyperammonaemia [Recovered/Resolved]
  - Coma [Recovered/Resolved]

NARRATIVE: CASE EVENT DATE: 20130820
